FAERS Safety Report 15170429 (Version 1)
Quarter: 2018Q3

REPORT INFORMATION
  Report Type: Spontaneous
  Country: ZA (occurrence: ZA)
  Receive Date: 20180720
  Receipt Date: 20180720
  Transmission Date: 20181010
  Serious: Yes (Hospitalization, Disabling)
  Sender: FDA-Public Use
  Company Number: ZA-TEVA-2018-ZA-909176

PATIENT
  Age: 68 Year
  Sex: Male

DRUGS (6)
  1. CLOMENT 25 MG [Concomitant]
     Dosage: AT 18:00
     Route: 048
  2. RIVOTRIL [Concomitant]
     Active Substance: CLONAZEPAM
     Route: 048
  3. FLUOXETINE [Interacting]
     Active Substance: FLUOXETINE HYDROCHLORIDE
     Dosage: 20 MILLIGRAM DAILY;
     Route: 048
     Dates: start: 201706, end: 20171115
  4. AZILECT [Suspect]
     Active Substance: RASAGILINE MESYLATE
     Route: 048
  5. STALEVO 100 MG [Concomitant]
     Dosage: 4 DOSAGE FORMS DAILY; AT 01:30, 14:00, 16:00 AND 18:30
     Route: 048
  6. STALEVO 150 MG [Concomitant]
     Dosage: 3 DOSAGE FORMS DAILY; AT 07:30, 11:30, 22:00
     Route: 048

REACTIONS (5)
  - Jaundice [Recovered/Resolved]
  - Drug interaction [Recovered/Resolved]
  - Delirium [Recovered/Resolved]
  - Thrombocytopenia [Recovered/Resolved]
  - Confusional state [Recovered/Resolved]

NARRATIVE: CASE EVENT DATE: 201710
